FAERS Safety Report 21720705 (Version 1)
Quarter: 2022Q4

REPORT INFORMATION
  Report Type: Spontaneous
  Country: IT (occurrence: IT)
  Receive Date: 20221213
  Receipt Date: 20221213
  Transmission Date: 20230112
  Serious: Yes (Other)
  Sender: FDA-Public Use
  Company Number: None

PATIENT
  Age: 53 Year
  Sex: Male

DRUGS (2)
  1. PACLITAXEL [Suspect]
     Active Substance: PACLITAXEL
     Indication: Oesophageal adenocarcinoma
     Dates: start: 20220523
  2. RAMUCIRUMAB [Suspect]
     Active Substance: RAMUCIRUMAB
     Indication: Oesophageal adenocarcinoma
     Dates: start: 20220523

REACTIONS (11)
  - Gastrooesophageal reflux disease [Recovering/Resolving]
  - Oedema peripheral [Recovered/Resolved]
  - Decreased appetite [Recovering/Resolving]
  - Mucosal inflammation [Recovering/Resolving]
  - Dysphagia [Recovering/Resolving]
  - Hyperbilirubinaemia [Recovered/Resolved]
  - Dysgeusia [Recovering/Resolving]
  - Hyperpyrexia [Recovering/Resolving]
  - Thrombocytopenia [Recovered/Resolved]
  - Syncope [Recovering/Resolving]
  - Epistaxis [Recovering/Resolving]

NARRATIVE: CASE EVENT DATE: 20220527
